FAERS Safety Report 23337150 (Version 1)
Quarter: 2023Q4

REPORT INFORMATION
  Report Type: Spontaneous
  Country: AT (occurrence: AT)
  Receive Date: 20231226
  Receipt Date: 20231226
  Transmission Date: 20240110
  Serious: Yes (Other)
  Sender: FDA-Public Use
  Company Number: AT-JNJFOC-20231061820

PATIENT
  Age: 74 Year
  Sex: Male
  Weight: 73 kg

DRUGS (3)
  1. VENETOCLAX [Suspect]
     Active Substance: VENETOCLAX
     Indication: Plasma cell myeloma
     Route: 048
     Dates: start: 20221013, end: 20230111
  2. VELCADE [Suspect]
     Active Substance: BORTEZOMIB
     Indication: Plasma cell myeloma
     Dosage: - LAST ADMINISTRATION ON JANUARY 11TH, 2023
     Route: 065
     Dates: start: 20221013, end: 20230111
  3. VELCADE [Suspect]
     Active Substance: BORTEZOMIB
     Indication: Plasma cell myeloma
     Route: 065
     Dates: start: 201812

REACTIONS (2)
  - Plasma cell myeloma [Not Recovered/Not Resolved]
  - Off label use [Unknown]
